FAERS Safety Report 11852991 (Version 2)
Quarter: 2015Q4

REPORT INFORMATION
  Report Type: Report from Study
  Country: HK (occurrence: HK)
  Receive Date: 20151218
  Receipt Date: 20151228
  Transmission Date: 20160305
  Serious: Yes (Hospitalization)
  Sender: FDA-Public Use
  Company Number: PHHO2015HK020758

PATIENT
  Age: 45 Year
  Sex: Female
  Weight: 54.3 kg

DRUGS (3)
  1. LDK378 [Suspect]
     Active Substance: CERITINIB
     Dosage: 600 MG, QD
     Route: 048
     Dates: start: 20151117, end: 20151210
  2. LDK378 [Suspect]
     Active Substance: CERITINIB
     Indication: NON-SMALL CELL LUNG CANCER
     Dosage: 750 MG, QD
     Route: 048
     Dates: start: 20151014, end: 20151103
  3. CROTAMITON [Concomitant]
     Active Substance: CROTAMITON
     Indication: URTICARIA
     Dosage: 2 APPLICATIONS DAILY
     Route: 061
     Dates: start: 20151123

REACTIONS (1)
  - Lower respiratory tract infection [Recovering/Resolving]

NARRATIVE: CASE EVENT DATE: 20151211
